FAERS Safety Report 4338743-0 (Version None)
Quarter: 2004Q2

REPORT INFORMATION
  Report Type: 
  Country: None (occurrence: None)
  Receive Date: 20040409
  Receipt Date: 20040329
  Transmission Date: 20050107
  Serious: Yes (Other)
  Sender: FDA-Public Use
  Company Number: DE-JNJFOC-20040303579

PATIENT
  Age: 54 Year
  Sex: Female
  Weight: 75 kg

DRUGS (2)
  1. RISPERDAL [Suspect]
     Indication: SCHIZOPHRENIA
     Dosage: 2 MG, IN 1 DAY, ORAL
     Route: 048
     Dates: start: 19990401
  2. BELOK ZOC MITE (TABLETS) METOPROLOL SUCCINATE [Concomitant]

REACTIONS (3)
  - AKATHISIA [None]
  - EYE HAEMORRHAGE [None]
  - RETINAL VEIN THROMBOSIS [None]
